FAERS Safety Report 7986348-2 (Version None)
Quarter: 2011Q4

REPORT INFORMATION
  Report Type: 
  Country: None (occurrence: None)
  Receive Date: 20111007
  Receipt Date: 20110801
  Transmission Date: 20120403
  Serious: No
  Sender: FDA-Public Use
  Company Number: 2011HGS-002451

PATIENT
  Age: 60 Year
  Sex: Female
  Weight: 143.7903 kg

DRUGS (7)
  1. AMBIEN [Concomitant]
  2. PLAQUENIL (HYDROXYCHLOROQUINE SULFATE) (HYDROXYCHLOROQUINE SULFATE) [Concomitant]
  3. MEDROL [Concomitant]
  4. BENLYSTA [Suspect]
     Indication: SYSTEMIC LUPUS ERYTHEMATOSUS
     Dosage: 10 MG/KG, 1 IN 28 D, INTRAVENOUS DRIP
     Route: 041
     Dates: start: 20110712, end: 20110712
  5. SYNTHROID (LEVOTHYROXINE SODIUM) (LEVOTHYROXINE SODIUM) [Concomitant]
  6. RESTASIS (CICLOSPORIN) (CICLOSPORIN) [Concomitant]
  7. MULTIVITAMIN (MULTIVITAMINS) (ERGOCALCIFEROL, ASCORBIC ACID, FOLIC ACI [Concomitant]

REACTIONS (6)
  - PYREXIA [None]
  - BACK PAIN [None]
  - STOMATITIS [None]
  - MEDICAL DEVICE COMPLICATION [None]
  - OROPHARYNGEAL PAIN [None]
  - MOUTH ULCERATION [None]
